FAERS Safety Report 5832701-2 (Version None)
Quarter: 2008Q3

REPORT INFORMATION
  Report Type: 
  Country: None (occurrence: None)
  Receive Date: 20080804
  Receipt Date: 20080804
  Transmission Date: 20090109
  Serious: Yes (Hospitalization, Other)
  Sender: FDA-Public Use
  Company Number: PHEH1999US04341

PATIENT
  Sex: Male
  Weight: 90.4 kg

DRUGS (16)
  1. RAD 666 RAD+ [Suspect]
     Indication: HEART TRANSPLANT
     Dosage: 1.5 MG, BID
     Route: 048
     Dates: start: 19990331
  2. NEORAL [Suspect]
     Indication: HEART TRANSPLANT
  3. PREDNISONE [Suspect]
     Indication: HEART TRANSPLANT
     Dosage: 5 MG, QD
     Route: 048
  4. NORVASC [Concomitant]
     Dosage: 5 MG, BID
     Route: 048
  5. VASOTEC [Concomitant]
     Dosage: 5 MG, BID
     Route: 048
  6. LASIX [Concomitant]
  7. POTASSIUM CHLORIDE [Concomitant]
  8. ASPIRIN [Concomitant]
  9. MULTI-VITAMINS VITAFIT [Concomitant]
  10. TRAZODONE HCL [Concomitant]
  11. KLONOPIN [Concomitant]
     Dosage: 1 MG, TID
     Route: 048
  12. TYLOX [Concomitant]
  13. PRILOSEC [Concomitant]
  14. DESYREL [Concomitant]
     Dosage: 200 MG, QD
     Route: 048
  15. CLARITIN [Concomitant]
     Dosage: 10 MG, QD
     Route: 048
  16. PREVACID [Concomitant]
     Dosage: 30 MG, QD
     Route: 048

REACTIONS (2)
  - JOINT EFFUSION [None]
  - OSTEONECROSIS [None]
